FAERS Safety Report 20564856 (Version 1)
Quarter: 2022Q1

REPORT INFORMATION
  Report Type: Spontaneous
  Country: US (occurrence: US)
  Receive Date: 20220308
  Receipt Date: 20220308
  Transmission Date: 20220423
  Serious: No
  Sender: FDA-Public Use
  Company Number: US-ALLERGAN-2120139US

PATIENT
  Age: 82 Year
  Sex: Female

DRUGS (2)
  1. ESTRADIOL [Suspect]
     Active Substance: ESTRADIOL
     Indication: Vulvovaginal dryness
     Dosage: 1/3 SIZE OF GREEN PEA DAILY
     Dates: start: 20210424
  2. ESTRADIOL [Concomitant]
     Active Substance: ESTRADIOL
     Dosage: UNK

REACTIONS (2)
  - Vulvovaginal burning sensation [Not Recovered/Not Resolved]
  - Vulvovaginal discomfort [Not Recovered/Not Resolved]

NARRATIVE: CASE EVENT DATE: 20210518
